FAERS Safety Report 16358089 (Version 2)
Quarter: 2019Q3

REPORT INFORMATION
  Report Type: Spontaneous
  Country: DE (occurrence: DE)
  Receive Date: 20190527
  Receipt Date: 20190702
  Transmission Date: 20191004
  Serious: Yes (Other)
  Sender: FDA-Public Use
  Company Number: PHHY2019DE115755

PATIENT
  Age: 37 Year
  Sex: Female

DRUGS (2)
  1. OCRELIZUMAB. [Concomitant]
     Active Substance: OCRELIZUMAB
     Indication: RELAPSING-REMITTING MULTIPLE SCLEROSIS
     Dosage: 300 MG
     Route: 065
  2. GILENYA [Suspect]
     Active Substance: FINGOLIMOD HYDROCHLORIDE
     Indication: RELAPSING-REMITTING MULTIPLE SCLEROSIS
     Dosage: UNK
     Route: 048
     Dates: start: 201504, end: 201712

REACTIONS (8)
  - Central nervous system lesion [Recovering/Resolving]
  - Multiple sclerosis [Recovered/Resolved]
  - Rebound effect [Recovering/Resolving]
  - Ataxia [Recovering/Resolving]
  - Multiple sclerosis relapse [Recovering/Resolving]
  - Lymphopenia [Recovering/Resolving]
  - Ophthalmoplegia [Recovering/Resolving]
  - Paraparesis [Recovering/Resolving]

NARRATIVE: CASE EVENT DATE: 201711
